FAERS Safety Report 10952965 (Version 2)
Quarter: 2015Q2

REPORT INFORMATION
  Report Type: Spontaneous
  Country: BR (occurrence: BR)
  Receive Date: 20150325
  Receipt Date: 20150406
  Transmission Date: 20150821
  Serious: Yes (Hospitalization, Other)
  Sender: FDA-Public Use
  Company Number: BR-PFIZER INC-2015091795

PATIENT
  Age: 30 Year
  Sex: Female

DRUGS (4)
  1. PRISTIQ EXTENDED RELEASE [Suspect]
     Active Substance: DESVENLAFAXINE SUCCINATE
     Indication: ANXIETY
  2. PRISTIQ EXTENDED RELEASE [Suspect]
     Active Substance: DESVENLAFAXINE SUCCINATE
     Indication: OBSESSIVE-COMPULSIVE DISORDER
     Dosage: 100 MG, 1X/DAY
  3. YASMIN [Concomitant]
     Active Substance: DROSPIRENONE\ETHINYL ESTRADIOL
     Dosage: UNK
  4. LAMITOR [Concomitant]
     Active Substance: LAMOTRIGINE
     Dosage: UNK

REACTIONS (4)
  - Crying [Recovered/Resolved]
  - Pica [Not Recovered/Not Resolved]
  - Panic disorder [Recovered/Resolved]
  - Depression [Recovered/Resolved]
